FAERS Safety Report 17047976 (Version 1)
Quarter: 2019Q4

REPORT INFORMATION
  Report Type: Spontaneous
  Country: US (occurrence: US)
  Receive Date: 20191118
  Receipt Date: 20191118
  Transmission Date: 20200122
  Serious: Yes (Other)
  Sender: FDA-Public Use
  Company Number: None

PATIENT
  Sex: Male

DRUGS (2)
  1. PROTOPIC [Suspect]
     Active Substance: TACROLIMUS
  2. TRIAMCINOLONE CREAM 0.1% [Suspect]
     Active Substance: TRIAMCINOLONE

REACTIONS (2)
  - Pruritus genital [None]
  - Drug ineffective [None]
